FAERS Safety Report 7550887-9 (Version None)
Quarter: 2011Q2

REPORT INFORMATION
  Report Type: 
  Country: None (occurrence: None)
  Receive Date: 20110609
  Receipt Date: 20110531
  Transmission Date: 20111010
  Serious: Yes (Hospitalization, Other)
  Sender: FDA-Public Use
  Company Number: ACO_24186_2011

PATIENT
  Age: 57 Year
  Sex: Female
  Weight: 56.7 kg

DRUGS (10)
  1. ZOLOFT [Concomitant]
  2. MULTIVITAMIN	/00097801/ (ASCORBIC ACID, CALCIUM PANTOTHENATE, ERGOCALC [Concomitant]
  3. CALCIUM (CALCIUM) [Concomitant]
  4. BACLOFEN [Concomitant]
  5. OXYBUTYNIN (OXYBUTYNIN) [Concomitant]
  6. BETASERON [Concomitant]
  7. LISINOPRIL [Concomitant]
  8. AMPYRA [Suspect]
     Indication: GAIT DISTURBANCE
     Dosage: 10 MG, BID, ORAL
     Route: 048
     Dates: start: 20101117, end: 20110223
  9. NEURONTIN [Concomitant]
  10. ALENDRONATE SODIUM [Concomitant]

REACTIONS (1)
  - GRAND MAL CONVULSION [None]
